FAERS Safety Report 17061048 (Version 1)
Quarter: 2019Q4

REPORT INFORMATION
  Report Type: Spontaneous
  Country: US (occurrence: US)
  Receive Date: 20191121
  Receipt Date: 20191121
  Transmission Date: 20200122
  Serious: No
  Sender: FDA-Public Use
  Company Number: US-SA-2019SA319979

PATIENT
  Age: 7 Year
  Sex: Male

DRUGS (8)
  1. AMOXICILLIN. [Concomitant]
     Active Substance: AMOXICILLIN
  2. MONTELUKAST [Concomitant]
     Active Substance: MONTELUKAST SODIUM
  3. BETAMETH DIPROPIONATE [Concomitant]
  4. EUCRISA [Concomitant]
     Active Substance: CRISABOROLE
  5. DUPIXENT [Suspect]
     Active Substance: DUPILUMAB
     Indication: DERMATITIS ATOPIC
     Dosage: 400 MG, 1X
     Route: 058
     Dates: start: 20191031, end: 20191031
  6. AZATHIOPRINE. [Concomitant]
     Active Substance: AZATHIOPRINE
  7. TACROLIMUS. [Concomitant]
     Active Substance: TACROLIMUS
  8. DESONIDE. [Concomitant]
     Active Substance: DESONIDE

REACTIONS (3)
  - Dermatitis atopic [Not Recovered/Not Resolved]
  - Product use issue [Unknown]
  - Rash [Not Recovered/Not Resolved]
